FAERS Safety Report 6015781-3 (Version None)
Quarter: 2008Q4

REPORT INFORMATION
  Report Type: 
  Country: None (occurrence: None)
  Receive Date: 20081219
  Receipt Date: 20081219
  Transmission Date: 20090506
  Serious: Yes (Life-Threatening, Hospitalization, Disabling, Other)
  Sender: FDA-Public Use
  Company Number: None

PATIENT
  Age: 34 Year
  Sex: Female
  Weight: 70.3075 kg

DRUGS (2)
  1. LISINOPRIL [Suspect]
     Indication: BLOOD PRESSURE DECREASED
     Dosage: 1 TAB DAILY PO
     Route: 048
     Dates: start: 20071130, end: 20081208
  2. LISINOPRIL [Suspect]
     Indication: MITRAL VALVE REPAIR
     Dosage: 1 TAB DAILY PO
     Route: 048
     Dates: start: 20071130, end: 20081208

REACTIONS (1)
  - ANAPHYLACTIC REACTION [None]
